FAERS Safety Report 10914530 (Version 2)
Quarter: 2015Q2

REPORT INFORMATION
  Report Type: Spontaneous
  Country: US (occurrence: US)
  Receive Date: 20150313
  Receipt Date: 20150522
  Transmission Date: 20150821
  Serious: No
  Sender: FDA-Public Use
  Company Number: US-GLAXOSMITHKLINE-US2015GSK027261

PATIENT
  Sex: Female

DRUGS (8)
  1. FUROSEMIDE. [Concomitant]
     Active Substance: FUROSEMIDE
  2. BREO ELLIPTA [Suspect]
     Active Substance: FLUTICASONE FUROATE\VILANTEROL TRIFENATATE
     Indication: DYSPNOEA
     Dosage: 1 PUFF(S), QD
     Route: 055
     Dates: start: 2014
  3. BREO ELLIPTA [Suspect]
     Active Substance: FLUTICASONE FUROATE\VILANTEROL TRIFENATATE
     Indication: INCREASED UPPER AIRWAY SECRETION
  4. KRILL OIL [Concomitant]
     Active Substance: DIETARY SUPPLEMENT
  5. ENALAPRIL [Concomitant]
     Active Substance: ENALAPRIL
  6. SPIRONOLACTONE. [Concomitant]
     Active Substance: SPIRONOLACTONE
  7. PANTOPRAZOLE [Concomitant]
     Active Substance: PANTOPRAZOLE SODIUM
  8. CARVEDILOL. [Concomitant]
     Active Substance: CARVEDILOL

REACTIONS (7)
  - Gingival pain [Recovered/Resolved]
  - Drug ineffective [Unknown]
  - Oral discomfort [Not Recovered/Not Resolved]
  - Productive cough [Not Recovered/Not Resolved]
  - Stomatitis [Not Recovered/Not Resolved]
  - Medication error [Unknown]
  - Device use error [Unknown]
